FAERS Safety Report 9432060 (Version 1)
Quarter: 2013Q3

REPORT INFORMATION
  Report Type: Spontaneous
  Country: FR (occurrence: None)
  Receive Date: 20130726
  Receipt Date: 20130726
  Transmission Date: 20140515
  Serious: Yes (Hospitalization)
  Sender: FDA-Public Use
  Company Number: DSM-2013-00680

PATIENT
  Age: 82 Year
  Sex: Male

DRUGS (8)
  1. ALTEIS DUO [Suspect]
     Indication: HYPERTENSION
     Route: 048
     Dates: end: 20130517
  2. TEMERIT [Suspect]
     Indication: PRODUCT USED FOR UNKNOWN INDICATION
     Route: 048
     Dates: end: 20120408
  3. HEMIGOXINE [Suspect]
     Indication: PRODUCT USED FOR UNKNOWN INDICATION
     Route: 048
     Dates: start: 20130403
  4. KALEORID LP 600 MG, TABLET [Suspect]
     Indication: HYPOKALAEMIA
     Route: 048
     Dates: start: 20130517
  5. METFORMIN [Suspect]
     Indication: INSULIN-REQUIRING TYPE 2 DIABETES MELLITUS
     Route: 048
     Dates: start: 20130523
  6. GINSENG EXTRACT [Suspect]
     Indication: COGNITIVE DISORDER
     Route: 048
     Dates: start: 20130417
  7. CYCLO 3 PORT [Suspect]
     Indication: PRODUCT USED FOR UNKNOWN INDICATION
     Dosage: (3 IN 1 D) ORAL
     Route: 048
     Dates: start: 20130417
  8. LANTUS [Suspect]
     Indication: INSULIN-REQUIRING TYPE 2 DIABETES MELLITUS
     Route: 050
     Dates: start: 20130408

REACTIONS (5)
  - Muscular weakness [None]
  - Bradycardia [None]
  - Cardioactive drug level increased [None]
  - Malnutrition [None]
  - Renal failure [None]
